FAERS Safety Report 10015315 (Version 4)
Quarter: 2014Q2

REPORT INFORMATION
  Report Type: Spontaneous
  Country: US (occurrence: US)
  Receive Date: 20140317
  Receipt Date: 20140512
  Transmission Date: 20141212
  Serious: Yes (Other)
  Sender: FDA-Public Use
  Company Number: US-PFIZER INC-2014074857

PATIENT
  Age: 49 Year
  Sex: Male

DRUGS (5)
  1. CHANTIX [Suspect]
     Dosage: STARTING MONTH BOX
     Dates: start: 20140306
  2. LYRICA [Concomitant]
     Dosage: 150 MG, UNK
     Dates: start: 20110505
  3. ISOSORBIDE MN ER [Concomitant]
     Dosage: 30 MG, UNK
     Dates: start: 20120916
  4. TRAMADOL [Concomitant]
     Dosage: 200 MG, UNK
     Dates: start: 20140226
  5. TRAMADOL [Concomitant]
     Dosage: 50 MG, UNK
     Dates: start: 20140303

REACTIONS (14)
  - Haematochezia [Unknown]
  - Dysuria [Recovering/Resolving]
  - Gastrointestinal pain [Unknown]
  - Pancreatic disorder [Unknown]
  - Functional gastrointestinal disorder [Recovering/Resolving]
  - Pain [Recovering/Resolving]
  - Abdominal pain [Unknown]
  - Chest pain [Unknown]
  - Headache [Unknown]
  - Swelling [Unknown]
  - Pleuritic pain [Unknown]
  - Hypoaesthesia [Unknown]
  - Pain in extremity [Unknown]
  - Micturition disorder [Unknown]
